FAERS Safety Report 10182624 (Version 1)
Quarter: 2014Q2

REPORT INFORMATION
  Report Type: Spontaneous
  Country: US (occurrence: None)
  Receive Date: 20140425
  Receipt Date: 20140425
  Transmission Date: 20141212
  Serious: No
  Sender: FDA-Public Use
  Company Number: AP356-00404-SPO-US

PATIENT
  Sex: Female

DRUGS (1)
  1. BELVIQ [Suspect]
     Indication: OBESITY
     Route: 048
     Dates: start: 201311, end: 2013

REACTIONS (2)
  - Disturbance in attention [None]
  - Confusional state [None]
